FAERS Safety Report 7069336-2 (Version None)
Quarter: 2010Q4

REPORT INFORMATION
  Report Type: 
  Country: None (occurrence: None)
  Receive Date: 20101028
  Receipt Date: 20101019
  Transmission Date: 20110411
  Serious: Yes (Other)
  Sender: FDA-Public Use
  Company Number: GT-BAXTER-2010BH026826

PATIENT
  Age: 47 Year
  Sex: Female
  Weight: 113 kg

DRUGS (5)
  1. FORANE [Suspect]
     Indication: SPINAL LAMINECTOMY
     Route: 055
  2. FENTANYL [Concomitant]
     Indication: INDUCTION OF ANAESTHESIA
     Route: 042
  3. PROPOFOL [Concomitant]
     Indication: INDUCTION OF ANAESTHESIA
     Route: 042
  4. PROPOFOL [Concomitant]
     Route: 042
  5. VECURONIUM BROMIDE [Concomitant]
     Indication: MUSCLE RELAXANT THERAPY
     Route: 042

REACTIONS (1)
  - DRUG INEFFECTIVE [None]
